FAERS Safety Report 9517189 (Version 4)
Quarter: 2013Q4

REPORT INFORMATION
  Report Type: Spontaneous
  Country: JP (occurrence: JP)
  Receive Date: 20130911
  Receipt Date: 20131004
  Transmission Date: 20140711
  Serious: Yes (Hospitalization)
  Sender: FDA-Public Use
  Company Number: JP-MERCK-1309JPN003398

PATIENT
  Age: 78 Year
  Sex: Female

DRUGS (5)
  1. BONALON BAG [Suspect]
     Indication: OSTEOPOROSIS
     Dosage: 900 MICROGRAM, ONCE PER FOUR WEEKS
     Route: 041
     Dates: start: 20121211, end: 20130723
  2. FOSAMAC TABLETS 35MG [Suspect]
     Indication: OSTEOPOROSIS
     Dosage: 35 MG, WEEKLY
     Route: 048
     Dates: start: 20061004, end: 20121130
  3. LOXONIN [Concomitant]
     Indication: BACK PAIN
     Dosage: 120 MG/DAY
     Route: 048
     Dates: start: 20121211, end: 20130805
  4. MUCOSTA [Concomitant]
     Indication: GASTRITIS PROPHYLAXIS
     Dosage: 200 MG/DAY
     Route: 048
     Dates: start: 20121211, end: 20130805
  5. MUCOSTA [Concomitant]
     Dosage: UNK

REACTIONS (2)
  - Femur fracture [Recovering/Resolving]
  - Femur fracture [Recovering/Resolving]
